FAERS Safety Report 5602121-4 (Version None)
Quarter: 2008Q1

REPORT INFORMATION
  Report Type: 
  Country: None (occurrence: None)
  Receive Date: 20080125
  Receipt Date: 20080116
  Transmission Date: 20080703
  Serious: Yes (Other)
  Sender: FDA-Public Use
  Company Number: PHHY2008JP00589

PATIENT
  Sex: Male

DRUGS (1)
  1. DICLOFENAC SODIUM [Suspect]
     Indication: PYREXIA
     Dosage: ONE OR TWO 25 MG SUPPOSITORIES
     Route: 054
     Dates: start: 20010301

REACTIONS (4)
  - DIARRHOEA [None]
  - HAEMATOCHEZIA [None]
  - PSEUDOMEMBRANOUS COLITIS [None]
  - RECTAL HAEMORRHAGE [None]
